FAERS Safety Report 8208113-3 (Version None)
Quarter: 2012Q1

REPORT INFORMATION
  Report Type: 
  Country: None (occurrence: None)
  Receive Date: 20120314
  Receipt Date: 20120306
  Transmission Date: 20120608
  Serious: No
  Sender: FDA-Public Use
  Company Number: PHEH2011US009540

PATIENT
  Sex: Male
  Weight: 75.737 kg

DRUGS (12)
  1. LIPITOR [Concomitant]
     Dosage: UNK UKN, UNK
  2. GEMFIBROZIL [Concomitant]
     Dosage: UNK UKN, UNK
  3. LISINOPRIL [Concomitant]
     Dosage: UNK UKN, UNK
  4. RAPAMUNE [Concomitant]
     Dosage: UNK UKN, UNK
  5. COREG [Concomitant]
     Dosage: UNK UKN, UNK
  6. VALTREX [Concomitant]
     Dosage: UNK UKN, UNK
  7. SODIUM POTASSIUM TARTRATE [Concomitant]
     Dosage: UNK UKN, UNK
  8. LASIX [Concomitant]
     Dosage: UNK UKN, UNK
  9. MYCOPHENOLATE MOFETIL [Concomitant]
     Dosage: UNK UKN, UNK
  10. PREDNISONE [Concomitant]
     Dosage: UNK UKN, UNK
  11. CLONIDINE HCL [Concomitant]
     Dosage: UNK UKN, UNK
  12. TASIGNA [Suspect]
     Indication: NEOPLASM MALIGNANT
     Dosage: 300 MG, BID
     Route: 048
     Dates: start: 20110901

REACTIONS (2)
  - SINUSITIS [None]
  - ABDOMINAL PAIN UPPER [None]
